FAERS Safety Report 7028875-0 (Version None)
Quarter: 2010Q4

REPORT INFORMATION
  Report Type: 
  Country: None (occurrence: None)
  Receive Date: 20101005
  Receipt Date: 20100928
  Transmission Date: 20110411
  Serious: Yes (Hospitalization)
  Sender: FDA-Public Use
  Company Number: JP-BRISTOL-MYERS SQUIBB COMPANY-15290158

PATIENT
  Age: 63 Year
  Sex: Male

DRUGS (7)
  1. APIXABAN [Suspect]
     Indication: THROMBOSIS PROPHYLAXIS
     Dosage: INTERR ON 14SEP2010. RESTARTED ON 23SEP10 (10 MG)
     Route: 048
     Dates: start: 20080811
  2. WARFARIN SODIUM [Suspect]
     Indication: THROMBOSIS PROPHYLAXIS
     Dosage: INTERRUPTED ON 14SEP2010. RESTARTED ON 23SEP10 (3MG)
     Route: 048
     Dates: start: 20080811
  3. BLINDED: PLACEBO [Suspect]
     Indication: THROMBOSIS PROPHYLAXIS
     Dosage: INTERRUPTED ON 14SEP2010. RESTARTED ON 23SEP10
     Route: 048
     Dates: start: 20080811
  4. BISOPROLOL [Concomitant]
  5. DIGOXIN [Concomitant]
  6. MIGLITOL [Concomitant]
  7. SITAGLIPTIN PHOSPHATE [Concomitant]

REACTIONS (2)
  - COLONIC POLYP [None]
  - LARGE INTESTINAL HAEMORRHAGE [None]
